FAERS Safety Report 9644876 (Version 1)
Quarter: 2013Q4

REPORT INFORMATION
  Report Type: Report from Study
  Country: BR (occurrence: BR)
  Receive Date: 20131025
  Receipt Date: 20131025
  Transmission Date: 20140711
  Serious: Yes (Other)
  Sender: FDA-Public Use
  Company Number: PHHY2013BR120154

PATIENT
  Sex: Female
  Weight: 56 kg

DRUGS (4)
  1. RITALIN LA [Suspect]
     Indication: ATTENTION DEFICIT/HYPERACTIVITY DISORDER
     Dosage: 1 DF, DAILY (ONE CAPSULE OF 30 MG,DAILY)
     Dates: start: 2009
  2. RITALIN LA [Suspect]
     Dosage: UNK UKN, UNK
  3. CONCERTA [Suspect]
     Indication: ATTENTION DEFICIT/HYPERACTIVITY DISORDER
     Dosage: 1 DF, DAILY
     Dates: start: 2009
  4. LUVOX [Concomitant]
     Dosage: UNK UKN, UNK

REACTIONS (1)
  - Panic disorder [Recovered/Resolved]
